FAERS Safety Report 5314552-0 (Version None)
Quarter: 2007Q2

REPORT INFORMATION
  Report Type: 
  Country: None (occurrence: None)
  Receive Date: 20070425
  Receipt Date: 20070414
  Transmission Date: 20071010
  Serious: Yes (Hospitalization)
  Sender: FDA-Public Use
  Company Number: 070409-0000375

PATIENT
  Age: 80 Year
  Sex: Female

DRUGS (3)
  1. TRANXENE [Suspect]
     Indication: ANXIETY
     Dosage: 3.75 MG; QD; PO
     Route: 048
     Dates: end: 20070301
  2. LEXAPRO [Suspect]
     Indication: ANXIETY
     Dosage: 10 MG; PO
     Route: 048
     Dates: start: 20070403
  3. PAXIL [Concomitant]

REACTIONS (13)
  - ASTHENIA [None]
  - DERMATITIS ALLERGIC [None]
  - DISORIENTATION [None]
  - DYSSOMNIA [None]
  - HEADACHE [None]
  - HYPERSENSITIVITY [None]
  - NAUSEA [None]
  - PRESYNCOPE [None]
  - RASH [None]
  - SOMNOLENCE [None]
  - STOMACH DISCOMFORT [None]
  - TREMOR [None]
  - URTICARIA [None]
